FAERS Safety Report 6355318-2 (Version None)
Quarter: 2009Q3

REPORT INFORMATION
  Report Type: 
  Country: None (occurrence: None)
  Receive Date: 20090914
  Receipt Date: 20090902
  Transmission Date: 20100115
  Serious: Yes (Other)
  Sender: FDA-Public Use
  Company Number: PHHY2009DE37826

PATIENT
  Sex: Female

DRUGS (4)
  1. FEMARA [Suspect]
     Indication: BREAST CANCER
     Dosage: 2.5 MG DAILY
     Route: 048
     Dates: start: 20070417
  2. CALCIUM [Concomitant]
     Dosage: UNK
     Route: 065
     Dates: start: 20080401
  3. VITAMIN D [Concomitant]
     Dosage: UNK
     Route: 065
     Dates: start: 20080401
  4. RADIATION THERAPY [Concomitant]
     Dosage: UNK
     Route: 065
     Dates: start: 20070419, end: 20070612

REACTIONS (3)
  - ALOPECIA [None]
  - FALL [None]
  - RADIUS FRACTURE [None]
